FAERS Safety Report 5484942-4 (Version None)
Quarter: 2007Q4

REPORT INFORMATION
  Report Type: 
  Country: None (occurrence: None)
  Receive Date: 20071011
  Receipt Date: 20071002
  Transmission Date: 20080405
  Serious: Yes (Other)
  Sender: FDA-Public Use
  Company Number: 2007SP019300

PATIENT
  Age: 97 Year
  Sex: Male
  Weight: 64.8644 kg

DRUGS (4)
  1. CLARITIN [Suspect]
     Indication: DYSPHONIA
     Dosage: 1 DF;QD;PO
     Route: 048
     Dates: start: 20070911
  2. PLAVIX [Concomitant]
  3. LIPITOR [Concomitant]
  4. TOPROL-XL [Concomitant]

REACTIONS (3)
  - ANGINA PECTORIS [None]
  - CHEST DISCOMFORT [None]
  - MALAISE [None]
